FAERS Safety Report 9993273 (Version 1)
Quarter: 2014Q1

REPORT INFORMATION
  Report Type: Spontaneous
  Country: US (occurrence: US)
  Receive Date: 20140310
  Receipt Date: 20140310
  Transmission Date: 20141002
  Serious: Yes (Other)
  Sender: FDA-Public Use
  Company Number: 2014SP000610

PATIENT
  Sex: Male

DRUGS (2)
  1. LATUDA [Suspect]
     Route: 048
     Dates: start: 20140225
  2. LATUDA [Suspect]
     Route: 048
     Dates: end: 20140225

REACTIONS (3)
  - Lip swelling [Unknown]
  - Erythema [Unknown]
  - Memory impairment [Unknown]
